FAERS Safety Report 6713383-4 (Version None)
Quarter: 2010Q2

REPORT INFORMATION
  Report Type: 
  Country: None (occurrence: None)
  Receive Date: 20100506
  Receipt Date: 20100428
  Transmission Date: 20101027
  Serious: Yes (Hospitalization)
  Sender: FDA-Public Use
  Company Number: IE-ROCHE-700152

PATIENT
  Sex: Female

DRUGS (2)
  1. AVASTIN [Suspect]
     Indication: BREAST CANCER
     Route: 042
     Dates: start: 20100120
  2. CAELYX [Suspect]
     Indication: BREAST CANCER
     Route: 042
     Dates: start: 20100120

REACTIONS (4)
  - ILL-DEFINED DISORDER [None]
  - PAIN [None]
  - PURPURA [None]
  - SKIN DISORDER [None]
